FAERS Safety Report 12932686 (Version 1)
Quarter: 2016Q4

REPORT INFORMATION
  Report Type: Spontaneous
  Country: US (occurrence: US)
  Receive Date: 20161111
  Receipt Date: 20161111
  Transmission Date: 20170207
  Serious: Yes (Other)
  Sender: FDA-Public Use
  Company Number: US-WEST-WARD PHARMACEUTICALS CORP.-US-H14001-16-02373

PATIENT
  Sex: Female

DRUGS (2)
  1. ETOPOSIDE. [Suspect]
     Active Substance: ETOPOSIDE
     Route: 065
     Dates: start: 201605
  2. ETOPOSIDE. [Suspect]
     Active Substance: ETOPOSIDE
     Indication: SPINAL CORD NEOPLASM
     Route: 065
     Dates: start: 201604

REACTIONS (2)
  - Neoplasm progression [Unknown]
  - Nerve compression [Unknown]

NARRATIVE: CASE EVENT DATE: 2016
